FAERS Safety Report 14910546 (Version 2)
Quarter: 2018Q2

REPORT INFORMATION
  Report Type: Report from Study
  Country: BR (occurrence: BR)
  Receive Date: 20180517
  Receipt Date: 20180530
  Transmission Date: 20180711
  Serious: Yes (Other)
  Sender: FDA-Public Use
  Company Number: PHHY2018BR007885

PATIENT
  Age: 62 Year
  Sex: Female
  Weight: 74 kg

DRUGS (4)
  1. GILENYA [Suspect]
     Active Substance: FINGOLIMOD HYDROCHLORIDE
     Dosage: 0.5 MG, QD
     Route: 048
     Dates: start: 20180522
  2. GILENYA [Suspect]
     Active Substance: FINGOLIMOD HYDROCHLORIDE
     Indication: MULTIPLE SCLEROSIS
     Dosage: 0.5 MG, QD
     Route: 048
     Dates: start: 201211, end: 201801
  3. SOLU-MEDROL [Suspect]
     Active Substance: METHYLPREDNISOLONE SODIUM SUCCINATE
     Indication: MULTIPLE SCLEROSIS RELAPSE
     Dosage: UNK
     Route: 065
     Dates: start: 20180420, end: 20180423
  4. SALINE [Suspect]
     Active Substance: SODIUM CHLORIDE
     Indication: MULTIPLE SCLEROSIS RELAPSE
     Dosage: UNK
     Route: 065
     Dates: start: 20180420, end: 20180423

REACTIONS (12)
  - Femur fracture [Recovering/Resolving]
  - Vision blurred [Recovering/Resolving]
  - Multiple sclerosis relapse [Recovering/Resolving]
  - Fall [Recovering/Resolving]
  - Mass [Recovering/Resolving]
  - Decreased immune responsiveness [Unknown]
  - Aphthous ulcer [Recovering/Resolving]
  - Skin discolouration [Not Recovered/Not Resolved]
  - Dysgeusia [Recovered/Resolved]
  - Cataract [Unknown]
  - Headache [Recovering/Resolving]
  - Swelling [Recovered/Resolved]

NARRATIVE: CASE EVENT DATE: 20160818
